FAERS Safety Report 4280142-4 (Version None)
Quarter: 2004Q1

REPORT INFORMATION
  Report Type: 
  Country: None (occurrence: None)
  Receive Date: 20040126
  Receipt Date: 20040116
  Transmission Date: 20041129
  Serious: Yes (Hospitalization)
  Sender: FDA-Public Use
  Company Number: 2004-01-0745

PATIENT
  Age: 39 Year
  Sex: Male

DRUGS (2)
  1. RIBAVIRIN [Suspect]
     Indication: HEPATITIS C
     Dosage: 1000 MG QD ORAL
     Route: 048
     Dates: start: 20030220
  2. INFERAX (INTERFERON ALFACON-1) INJECTABLE [Concomitant]
     Indication: HEPATITIS C
     Dosage: 9 MCG QD SUBCUTANEOUS
     Route: 058
     Dates: start: 20030117

REACTIONS (1)
  - TESTICULAR SEMINOMA (PURE) [None]
